FAERS Safety Report 7145665-9 (Version None)
Quarter: 2010Q4

REPORT INFORMATION
  Report Type: 
  Country: None (occurrence: None)
  Receive Date: 20101208
  Receipt Date: 20100910
  Transmission Date: 20110411
  Serious: No
  Sender: FDA-Public Use
  Company Number: US-ABBOTT-10P-163-0670893-00

PATIENT
  Sex: Female

DRUGS (1)
  1. ERYTHROMYCIN FILMTAB [Suspect]
     Indication: PROPHYLAXIS
     Route: 048
     Dates: start: 20100907

REACTIONS (4)
  - CARDIAC DISORDER [None]
  - COLD SWEAT [None]
  - DIARRHOEA [None]
  - NAUSEA [None]
